FAERS Safety Report 9553810 (Version 1)
Quarter: 2013Q3

REPORT INFORMATION
  Report Type: Spontaneous
  Country: US (occurrence: None)
  Receive Date: 20130912
  Receipt Date: 20130912
  Transmission Date: 20140515
  Serious: Yes (Hospitalization, Other)
  Sender: FDA-Public Use
  Company Number: 2010AP002243

PATIENT
  Age: 36 Year
  Sex: Female

DRUGS (2)
  1. CIPROFLOXACIN [Suspect]
     Indication: URINARY TRACT INFECTION
  2. NITROFURANTOIN [Suspect]
     Indication: URINARY TRACT INFECTION

REACTIONS (1)
  - Clostridium difficile colitis [None]
